FAERS Safety Report 14088231 (Version 1)
Quarter: 2017Q4

REPORT INFORMATION
  Report Type: Spontaneous
  Country: FR (occurrence: FR)
  Receive Date: 20171013
  Receipt Date: 20171013
  Transmission Date: 20180321
  Serious: Yes (Other)
  Sender: FDA-Public Use
  Company Number: FR-JNJFOC-20171011086

PATIENT
  Age: 89 Year
  Sex: Male

DRUGS (2)
  1. XARELTO [Suspect]
     Active Substance: RIVAROXABAN
     Indication: ARRHYTHMIA
     Route: 048
     Dates: start: 201602
  2. XARELTO [Suspect]
     Active Substance: RIVAROXABAN
     Indication: ARRHYTHMIA
     Route: 048
     Dates: start: 201703

REACTIONS (12)
  - Hypoaesthesia [Unknown]
  - Fall [Unknown]
  - Dysstasia [Unknown]
  - Anxiety [Unknown]
  - Pain in extremity [Unknown]
  - Haematochezia [Unknown]
  - Epistaxis [Unknown]
  - Arthralgia [Unknown]
  - Gingival bleeding [Unknown]
  - Prescribed underdose [Unknown]
  - Fear of falling [Unknown]
  - Pain [Unknown]
